FAERS Safety Report 9648687 (Version 1)
Quarter: 2013Q4

REPORT INFORMATION
  Report Type: Spontaneous
  Country: FR (occurrence: FR)
  Receive Date: 20131028
  Receipt Date: 20131028
  Transmission Date: 20140711
  Serious: Yes (Other)
  Sender: FDA-Public Use
  Company Number: FR-PFIZER INC-2013302640

PATIENT
  Age: 10 Year
  Sex: Male

DRUGS (4)
  1. ADVIL ENFANTS ET NOURRISSONS [Suspect]
     Indication: ABDOMINAL PAIN
     Dosage: 1 DF, SINGLE
     Route: 048
     Dates: start: 201308, end: 201308
  2. ADVIL ENFANTS ET NOURRISSONS [Suspect]
     Indication: INFLUENZA
  3. SPASFON [Concomitant]
     Indication: ABDOMINAL PAIN
     Dosage: UNK
     Dates: start: 201308
  4. SPASFON [Concomitant]
     Indication: INFLUENZA

REACTIONS (2)
  - Angioedema [Recovered/Resolved]
  - Urticaria [Recovered/Resolved]
